FAERS Safety Report 6375504-5 (Version None)
Quarter: 2009Q3

REPORT INFORMATION
  Report Type: 
  Country: None (occurrence: None)
  Receive Date: 20090924
  Receipt Date: 20090923
  Transmission Date: 20100115
  Serious: Yes (Other)
  Sender: FDA-Public Use
  Company Number: US-ROXANE LABORATORIES, INC.-2009-RO-00985RO

PATIENT
  Sex: Female

DRUGS (4)
  1. AZATHIOPRINE [Suspect]
     Indication: RENAL TRANSPLANT
     Dosage: 75 MG
     Route: 048
     Dates: start: 20050101
  2. MEDROL [Concomitant]
     Indication: RENAL TRANSPLANT
  3. PROZAC [Concomitant]
     Indication: ANXIETY
  4. LIPITOR [Concomitant]
     Indication: BLOOD CHOLESTEROL INCREASED

REACTIONS (1)
  - SQUAMOUS CELL CARCINOMA OF SKIN [None]
